FAERS Safety Report 22285490 (Version 2)
Quarter: 2023Q2

REPORT INFORMATION
  Report Type: Spontaneous
  Country: US (occurrence: US)
  Receive Date: 20230504
  Receipt Date: 20230524
  Transmission Date: 20230721
  Serious: No
  Sender: FDA-Public Use
  Company Number: US-BAUSCH-BL-2023-006710

PATIENT
  Age: 34 Year
  Sex: Female

DRUGS (2)
  1. RELISTOR [Suspect]
     Active Substance: METHYLNALTREXONE BROMIDE
     Indication: Constipation
     Route: 058
     Dates: start: 20230419
  2. SUBOXONE [Suspect]
     Active Substance: BUPRENORPHINE HYDROCHLORIDE\NALOXONE HYDROCHLORIDE
     Indication: Product used for unknown indication
     Route: 065
     Dates: start: 2019

REACTIONS (5)
  - Gait inability [Unknown]
  - Illness [Not Recovered/Not Resolved]
  - Yawning [Unknown]
  - Pollakiuria [Unknown]
  - Vomiting [Unknown]

NARRATIVE: CASE EVENT DATE: 20230419
